FAERS Safety Report 5737458-1 (Version None)
Quarter: 2008Q2

REPORT INFORMATION
  Report Type: 
  Country: None (occurrence: None)
  Receive Date: 20080514
  Receipt Date: 20080321
  Transmission Date: 20081010
  Serious: No
  Sender: FDA-Public Use
  Company Number: US-BRISTOL-MYERS SQUIBB COMPANY-14123665

PATIENT
  Age: 48 Year
  Sex: Female
  Weight: 72 kg

DRUGS (9)
  1. IXEMPRA KIT [Suspect]
     Indication: BREAST CANCER
     Dosage: LOT 7E010B: EXP. DATE = MAY/2009, NDC# 0015-1910-12 FOR 15MG
     Route: 042
  2. LORAZEPAM [Concomitant]
     Indication: NAUSEA
  3. VICODIN [Concomitant]
     Indication: PAIN
  4. LUNESTA [Concomitant]
     Indication: SLEEP DISORDER
  5. CELEXA [Concomitant]
     Route: 048
  6. DEXAMETHASONE [Concomitant]
     Indication: PREMEDICATION
     Route: 042
  7. DIPHENHYDRAMINE HCL [Concomitant]
     Indication: PREMEDICATION
     Route: 042
  8. RANITIDINE [Concomitant]
     Indication: PREMEDICATION
     Route: 042
  9. ALOXI [Concomitant]
     Indication: PREMEDICATION
     Route: 042

REACTIONS (2)
  - MEDICATION ERROR [None]
  - NO ADVERSE EVENT [None]
